FAERS Safety Report 18649921 (Version 1)
Quarter: 2020Q4

REPORT INFORMATION
  Report Type: Spontaneous
  Country: IT (occurrence: IT)
  Receive Date: 20201222
  Receipt Date: 20201222
  Transmission Date: 20210114
  Serious: Yes (Death, Hospitalization, Other)
  Sender: FDA-Public Use
  Company Number: IT-CORDEN PHARMA LATINA S.P.A.-IT-2020COR000029

PATIENT
  Age: 29 Year
  Sex: Female

DRUGS (3)
  1. LOMUSTINE. [Suspect]
     Active Substance: LOMUSTINE
     Indication: GLIOBLASTOMA
     Dosage: UNK, STOPPED AFTER 2ND CYCLE
     Route: 065
     Dates: end: 201811
  2. PROCARBAZINE [Suspect]
     Active Substance: PROCARBAZINE
     Indication: GLIOBLASTOMA
     Dosage: UNK, STOPPED AFTER 2ND CYCLE
     Route: 065
     Dates: end: 201811
  3. RADIOTHERAPY [Suspect]
     Active Substance: RADIATION THERAPY
     Indication: GLIOBLASTOMA
     Dosage: 6 GY FIVE CONSECUTIVE FRACTIONS; TOTAL 30 GY
     Route: 065
     Dates: end: 201811

REACTIONS (3)
  - Sepsis [Fatal]
  - Disease progression [Fatal]
  - Pancytopenia [Unknown]

NARRATIVE: CASE EVENT DATE: 201811
